FAERS Safety Report 6775372-3 (Version None)
Quarter: 2010Q2

REPORT INFORMATION
  Report Type: 
  Country: None (occurrence: None)
  Receive Date: 20100520
  Receipt Date: 20080331
  Transmission Date: 20101027
  Serious: Yes (Disabling, Other)
  Sender: FDA-Public Use
  Company Number: 2005138165

PATIENT
  Age: 48 Year
  Sex: Female

DRUGS (6)
  1. PROVERA [Suspect]
     Indication: HORMONE REPLACEMENT THERAPY
     Dosage: 10 MG, ORAL
     Route: 048
     Dates: start: 19920401, end: 19990101
  2. PREMARIN [Suspect]
     Indication: HORMONE REPLACEMENT THERAPY
     Dosage: 0.625 MG
     Dates: start: 19960801, end: 19990101
  3. ESTRATEST H.S. [Suspect]
     Indication: HORMONE REPLACEMENT THERAPY
     Dates: start: 19970101
  4. MEDROXYPROGESTERONE [Suspect]
     Indication: HOT FLUSH
     Dosage: 10 MG
     Dates: start: 19970101, end: 19980101
  5. MEDROXYPROGESTERONE [Suspect]
     Indication: MENSTRUAL DISORDER
     Dosage: 10 MG
     Dates: start: 19970101, end: 19980101
  6. NEURONTIN [Concomitant]

REACTIONS (1)
  - BREAST CANCER FEMALE [None]
